FAERS Safety Report 21784971 (Version 2)
Quarter: 2023Q1

REPORT INFORMATION
  Report Type: Spontaneous
  Country: CN (occurrence: CN)
  Receive Date: 20221227
  Receipt Date: 20230103
  Transmission Date: 20230417
  Serious: Yes (Hospitalization)
  Sender: FDA-Public Use
  Company Number: CN-PFIZER INC-PV202200131019

PATIENT
  Age: 39 Year
  Sex: Female

DRUGS (2)
  1. AZITHROMYCIN [Suspect]
     Active Substance: AZITHROMYCIN
     Indication: Pneumonia
     Dosage: 0.5 G, 1X/DAY
     Route: 041
     Dates: start: 20221213, end: 20221213
  2. SODIUM CHLORIDE [Concomitant]
     Active Substance: SODIUM CHLORIDE
     Indication: Pneumonia
     Dosage: 100 ML, 1X/DAY
     Route: 041
     Dates: start: 20221213, end: 20221213

REACTIONS (4)
  - Arthralgia [Recovered/Resolved]
  - Back pain [Recovered/Resolved]
  - Abdominal discomfort [Recovered/Resolved]
  - Myalgia [Recovered/Resolved]

NARRATIVE: CASE EVENT DATE: 20221213
